FAERS Safety Report 10359562 (Version 1)
Quarter: 2014Q3

REPORT INFORMATION
  Report Type: Spontaneous
  Country: US (occurrence: US)
  Receive Date: 20140804
  Receipt Date: 20140804
  Transmission Date: 20150326
  Serious: No
  Sender: FDA-Public Use
  Company Number: US-BAYER-2014-113643

PATIENT
  Age: 27 Year
  Sex: Female
  Weight: 57 kg

DRUGS (1)
  1. ALEVE [Suspect]
     Active Substance: NAPROXEN SODIUM
     Indication: PERIPHERAL SWELLING
     Dosage: UNK
     Route: 048
     Dates: start: 2007

REACTIONS (2)
  - Incorrect drug administration duration [None]
  - Therapeutic response changed [None]

NARRATIVE: CASE EVENT DATE: 20130907
